FAERS Safety Report 5635874-X (Version None)
Quarter: 2008Q1

REPORT INFORMATION
  Report Type: 
  Country: None (occurrence: None)
  Receive Date: 20080221
  Receipt Date: 20080215
  Transmission Date: 20080703
  Serious: Yes (Life-Threatening, Other)
  Sender: FDA-Public Use
  Company Number: GXKR2008DE00616

PATIENT
  Age: 49 Year
  Sex: Male

DRUGS (1)
  1. DEXAHEXAL (NGX)(DEXAMETHASONE) SOLUTION FOR INJECTION, 4MG/ML [Suspect]
     Dosage: 4 MG, INTRAMUSCULAR
     Route: 030
     Dates: start: 20071213

REACTIONS (2)
  - HYPERSENSITIVITY [None]
  - PARAPARESIS [None]
